FAERS Safety Report 9623189 (Version 1)
Quarter: 2013Q4

REPORT INFORMATION
  Report Type: Spontaneous
  Country: GB (occurrence: None)
  Receive Date: 20131010
  Receipt Date: 20131010
  Transmission Date: 20140711
  Serious: Yes (Hospitalization)
  Sender: FDA-Public Use
  Company Number: GB-DEXPHARM-20130687

PATIENT
  Age: 72 Year
  Sex: Male

DRUGS (1)
  1. OMEPRAZOLE [Suspect]
     Indication: GASTROOESOPHAGEAL REFLUX DISEASE
     Route: 048
     Dates: start: 20130909, end: 20130910

REACTIONS (10)
  - Dry mouth [None]
  - Hypersensitivity [None]
  - Dyspnoea [None]
  - Lip swelling [None]
  - Tachycardia [None]
  - Fatigue [None]
  - Vomiting [None]
  - Asthenia [None]
  - Wheezing [None]
  - Chromaturia [None]
